FAERS Safety Report 17281209 (Version 1)
Quarter: 2020Q1

REPORT INFORMATION
  Report Type: Spontaneous
  Country: IN (occurrence: IN)
  Receive Date: 20200117
  Receipt Date: 20200117
  Transmission Date: 20200409
  Serious: Yes (Other)
  Sender: FDA-Public Use
  Company Number: IN-ADIENNEP-2019AD000668

PATIENT
  Age: 17 Month
  Sex: Male

DRUGS (6)
  1. FLUDARABINE [Suspect]
     Active Substance: FLUDARABINE PHOSPHATE
     Indication: ALLOGENIC STEM CELL TRANSPLANTATION
     Dosage: 40 MG/M2
  2. TACROLIMUS. [Suspect]
     Active Substance: TACROLIMUS
     Indication: PROPHYLAXIS AGAINST GRAFT VERSUS HOST DISEASE
  3. TREOSULFAN [Suspect]
     Active Substance: TREOSULFAN
     Indication: ALLOGENIC STEM CELL TRANSPLANTATION
     Dosage: 14000 MG/M2
  4. METHOTREXATE. [Suspect]
     Active Substance: METHOTREXATE
     Indication: PROPHYLAXIS AGAINST GRAFT VERSUS HOST DISEASE
     Dosage: 5 MG/M2
  5. METHOTREXATE. [Suspect]
     Active Substance: METHOTREXATE
     Indication: PROPHYLAXIS AGAINST GRAFT VERSUS HOST DISEASE
     Dosage: 10 MG/M2
  6. THIOTEPA. [Suspect]
     Active Substance: THIOTEPA
     Indication: ALLOGENIC STEM CELL TRANSPLANTATION
     Dosage: 8 MG/KG

REACTIONS (3)
  - Chronic graft versus host disease in skin [Unknown]
  - Mucosal inflammation [Unknown]
  - Febrile neutropenia [Unknown]
